FAERS Safety Report 10654047 (Version 1)
Quarter: 2014Q4

REPORT INFORMATION
  Report Type: Spontaneous
  Country: US (occurrence: None)
  Receive Date: 20141205
  Receipt Date: 20141205
  Transmission Date: 20150529
  Serious: Yes (Other)
  Sender: FDA-Public Use
  Company Number: 163-POMAL-14085817

PATIENT
  Age: 77 Year
  Sex: Female

DRUGS (1)
  1. POMALYST [Suspect]
     Active Substance: POMALIDOMIDE
     Indication: PLASMA CELL MYELOMA
     Dosage: 2 MG, 21 IN 21 D
     Route: 048
     Dates: start: 20140815, end: 201408

REACTIONS (4)
  - Anaemia [None]
  - Full blood count decreased [None]
  - Toxicity to various agents [None]
  - Platelet count decreased [None]

NARRATIVE: CASE EVENT DATE: 201408
